FAERS Safety Report 5259352-5 (Version None)
Quarter: 2007Q1

REPORT INFORMATION
  Report Type: 
  Country: None (occurrence: None)
  Receive Date: 20070305
  Receipt Date: 20070216
  Transmission Date: 20070707
  Serious: Yes (Other)
  Sender: FDA-Public Use
  Company Number: 2007000309

PATIENT
  Age: 64 Year
  Sex: Male

DRUGS (2)
  1. TARCEVA [Suspect]
     Dosage: SEE IMAGE
     Route: 048
     Dates: start: 20061115, end: 20070103
  2. TARCEVA [Suspect]
     Dosage: SEE IMAGE
     Route: 048
     Dates: start: 20070104, end: 20070115

REACTIONS (2)
  - NAIL DISORDER [None]
  - SKIN FISSURES [None]
